FAERS Safety Report 12603176 (Version 1)
Quarter: 2016Q3

REPORT INFORMATION
  Report Type: Spontaneous
  Country: US (occurrence: US)
  Receive Date: 20160728
  Receipt Date: 20160728
  Transmission Date: 20161109
  Serious: No
  Sender: FDA-Public Use
  Company Number: US-CELGENEUS-USA-2016074020

PATIENT
  Sex: Male
  Weight: 77.63 kg

DRUGS (2)
  1. REVLIMID [Suspect]
     Active Substance: LENALIDOMIDE
     Indication: PLASMA CELL MYELOMA
     Route: 048
     Dates: start: 201507
  2. REVLIMID [Suspect]
     Active Substance: LENALIDOMIDE
     Route: 048
     Dates: start: 20160112

REACTIONS (6)
  - Constipation [Unknown]
  - Blood triglycerides increased [Unknown]
  - Diarrhoea [Unknown]
  - Weight increased [Unknown]
  - Irritability [Unknown]
  - Blood pressure abnormal [Unknown]
